FAERS Safety Report 8992272 (Version 1)
Quarter: 2013Q1

REPORT INFORMATION
  Report Type: Spontaneous
  Country: BR (occurrence: BR)
  Receive Date: 20130101
  Receipt Date: 20130101
  Transmission Date: 20140127
  Serious: Yes (Other)
  Sender: FDA-Public Use
  Company Number: BR-AMGEN-BRASP2012083354

PATIENT
  Age: 40 Year
  Sex: Female
  Weight: 62 kg

DRUGS (2)
  1. ENBREL [Suspect]
     Indication: RHEUMATOID ARTHRITIS
     Dosage: 50 MG, 1X/WEEK
     Dates: start: 201203
  2. METHOTREXATE [Concomitant]
     Dosage: UNK
     Dates: start: 1999

REACTIONS (2)
  - Rheumatoid arthritis [Unknown]
  - Joint effusion [Unknown]
